FAERS Safety Report 17797568 (Version 1)
Quarter: 2020Q2

REPORT INFORMATION
  Report Type: Spontaneous
  Country: US (occurrence: US)
  Receive Date: 20200515
  Receipt Date: 20200515
  Transmission Date: 20200714
  Serious: No
  Sender: FDA-Public Use
  Company Number: None

PATIENT
  Age: 37 Year
  Sex: Female
  Weight: 76.05 kg

DRUGS (9)
  1. ADVAIR HFA [Concomitant]
     Active Substance: FLUTICASONE PROPIONATE\SALMETEROL XINAFOATE
  2. CITALOPRAM [Concomitant]
     Active Substance: CITALOPRAM HYDROBROMIDE
  3. MULTIVITAMINS [Concomitant]
     Active Substance: VITAMINS
  4. TOPAMAX [Concomitant]
     Active Substance: TOPIRAMATE
  5. MAGNESIUM [Concomitant]
     Active Substance: MAGNESIUM
  6. AIMOVIG [Suspect]
     Active Substance: ERENUMAB-AOOE
     Indication: MIGRAINE
     Dosage: ?          QUANTITY:1 INJECTION(S);?
     Route: 058
     Dates: start: 20200505, end: 20200505
  7. METFORMIN [Concomitant]
     Active Substance: METFORMIN HYDROCHLORIDE
  8. IRON [Concomitant]
     Active Substance: IRON
  9. D-MANNOSE [Concomitant]

REACTIONS (8)
  - Asthenia [None]
  - Panic attack [None]
  - Loss of consciousness [None]
  - Swelling [None]
  - Paraesthesia [None]
  - Weight increased [None]
  - Thirst [None]
  - Fluid retention [None]

NARRATIVE: CASE EVENT DATE: 20200511
